FAERS Safety Report 14610967 (Version 1)
Quarter: 2018Q1

REPORT INFORMATION
  Report Type: Spontaneous
  Country: JP (occurrence: JP)
  Receive Date: 20180308
  Receipt Date: 20180308
  Transmission Date: 20180509
  Serious: Yes (Life-Threatening, Hospitalization, Other)
  Sender: FDA-Public Use
  Company Number: JP-ROCHE-587891

PATIENT
  Age: 60 Year
  Sex: Male
  Weight: 55 kg

DRUGS (9)
  1. FAMOTIDINE. [Concomitant]
     Active Substance: FAMOTIDINE
     Route: 048
  2. 5-FU [Concomitant]
     Active Substance: FLUOROURACIL
     Dosage: ROUTE: INTRAVENOUS DRIP
     Route: 050
     Dates: start: 20080325, end: 20080828
  3. ELPLAT [Concomitant]
     Active Substance: OXALIPLATIN
     Route: 041
     Dates: start: 20080325, end: 20080828
  4. 5-FU [Concomitant]
     Active Substance: FLUOROURACIL
     Dosage: ROUTE: INTRAVENOUS BOLUS
     Route: 050
     Dates: start: 20080325, end: 20080828
  5. AVASTIN [Suspect]
     Active Substance: BEVACIZUMAB
     Indication: RECTAL CANCER METASTATIC
     Route: 041
     Dates: start: 20080521, end: 20080828
  6. FLIVAS [Concomitant]
     Active Substance: NAFTOPIDIL
     Route: 048
  7. CALCIUM LEVOFOLINATE [Concomitant]
     Active Substance: LEVOLEUCOVORIN CALCIUM
     Route: 041
     Dates: start: 20080325, end: 20080828
  8. PYDOXAL [Concomitant]
     Active Substance: PYRIDOXAL
     Route: 048
  9. VESICARE [Concomitant]
     Active Substance: SOLIFENACIN SUCCINATE
     Route: 048

REACTIONS (3)
  - Cholangitis infective [Recovered/Resolved]
  - Gallbladder perforation [Recovered/Resolved]
  - Cholecystitis acute [Recovered/Resolved]

NARRATIVE: CASE EVENT DATE: 20080906
